FAERS Safety Report 5229585-2 (Version None)
Quarter: 2007Q1

REPORT INFORMATION
  Report Type: 
  Country: None (occurrence: None)
  Receive Date: 20061201
  Receipt Date: 20060925
  Transmission Date: 20070707
  Serious: No
  Sender: FDA-Public Use
  Company Number: 2006PV021872

PATIENT
  Age: 65 Year
  Sex: Male
  Weight: 103.8737 kg

DRUGS (9)
  1. BYETTA [Suspect]
     Indication: DIABETES MELLITUS NON-INSULIN-DEPENDENT
     Dosage: SEE IMAGE
     Route: 058
     Dates: start: 20060517, end: 20060616
  2. BYETTA [Suspect]
     Indication: DIABETES MELLITUS NON-INSULIN-DEPENDENT
     Dosage: SEE IMAGE
     Route: 058
     Dates: start: 20060617
  3. GLUCOVANCE [Concomitant]
  4. ACTOS [Concomitant]
  5. STARLIX [Concomitant]
  6. DIOVAN [Concomitant]
  7. ATENOLOL [Concomitant]
  8. LOTREL [Concomitant]
  9. ASPIRIN [Concomitant]

REACTIONS (3)
  - INJECTION SITE BRUISING [None]
  - INJECTION SITE HAEMORRHAGE [None]
  - WEIGHT DECREASED [None]
